FAERS Safety Report 5824268-X (Version None)
Quarter: 2008Q3

REPORT INFORMATION
  Report Type: 
  Country: None (occurrence: None)
  Receive Date: 20080728
  Receipt Date: 20080718
  Transmission Date: 20090109
  Serious: Yes (Hospitalization)
  Sender: FDA-Public Use
  Company Number: FR-AVENTIS-200812746FR

PATIENT
  Age: 81 Year
  Sex: Female

DRUGS (13)
  1. LOVENOX [Suspect]
     Route: 058
     Dates: start: 20080201, end: 20080226
  2. AUGMENTIN '125' [Suspect]
     Route: 042
     Dates: start: 20080225, end: 20080226
  3. ACETAMINOPHEN [Suspect]
     Route: 042
     Dates: start: 20080225, end: 20080226
  4. TRACRIUM [Suspect]
     Route: 042
     Dates: start: 20080225, end: 20080225
  5. ETOMIDATE [Suspect]
     Route: 042
     Dates: start: 20080225, end: 20080225
  6. LASIX [Concomitant]
     Route: 042
     Dates: start: 20070225
  7. OFLOCET                            /00731801/ [Concomitant]
     Dates: start: 20080201, end: 20080221
  8. NICARDIPINE HCL [Concomitant]
     Dates: start: 20080201
  9. DOLIPRANE [Concomitant]
     Dates: start: 20080201
  10. ATACAND [Concomitant]
     Dates: end: 20080225
  11. NEURONTIN [Concomitant]
     Dates: end: 20080225
  12. KARDEGIC                           /00002703/ [Concomitant]
     Dates: end: 20080225
  13. MONO-TILDIEM [Concomitant]
     Dates: end: 20080225

REACTIONS (5)
  - BRONCHOSPASM [None]
  - DERMATITIS BULLOUS [None]
  - LIVEDO RETICULARIS [None]
  - RASH MACULO-PAPULAR [None]
  - TACHYCARDIA [None]
